FAERS Safety Report 5611590-5 (Version None)
Quarter: 2008Q1

REPORT INFORMATION
  Report Type: 
  Country: None (occurrence: None)
  Receive Date: 20080201
  Receipt Date: 20080124
  Transmission Date: 20080703
  Serious: Yes (Hospitalization)
  Sender: FDA-Public Use
  Company Number: JP-BOEHRINGER INGELHEIM GMBH, GERMANY-2007-BP-25020NB

PATIENT
  Sex: Male
  Weight: 60 kg

DRUGS (8)
  1. MICARDIS [Suspect]
     Indication: HYPERTENSION
     Route: 048
     Dates: start: 20060831
  2. SIGMART [Concomitant]
     Route: 048
     Dates: start: 20060606
  3. ASPIRIN [Concomitant]
     Indication: PROPHYLAXIS
     Route: 048
  4. KREMEZIN [Concomitant]
     Indication: PROPHYLAXIS
     Route: 048
     Dates: start: 20060831
  5. ALDACTONE [Concomitant]
     Indication: CARDIAC FAILURE CHRONIC
     Route: 048
     Dates: start: 20050128
  6. TICLOPIDINE HCL [Concomitant]
     Route: 048
     Dates: end: 20070801
  7. ANPLAG [Concomitant]
     Route: 048
     Dates: start: 20061220, end: 20070701
  8. GLIMICRON [Concomitant]
     Route: 048
     Dates: start: 20050401, end: 20070701

REACTIONS (1)
  - CARDIAC FAILURE CHRONIC [None]
